FAERS Safety Report 12273336 (Version 1)
Quarter: 2016Q2

REPORT INFORMATION
  Report Type: Spontaneous
  Country: US (occurrence: US)
  Receive Date: 20160415
  Receipt Date: 20160415
  Transmission Date: 20160815
  Serious: No
  Sender: FDA-Public Use
  Company Number: US-ROCHE-1099665

PATIENT
  Sex: Female

DRUGS (4)
  1. PEGASYS [Suspect]
     Active Substance: PEGINTERFERON ALFA-2A
     Indication: CHRONIC HEPATITIS C
     Route: 065
     Dates: start: 20111215
  2. THISTLE HERB [Concomitant]
  3. TELAPREVIR [Suspect]
     Active Substance: TELAPREVIR
     Indication: CHRONIC HEPATITIS C
  4. RIBAVIRIN. [Suspect]
     Active Substance: RIBAVIRIN
     Indication: CHRONIC HEPATITIS C
     Dosage: 1400 MG DAILY IN A DIVIDED DOSES
     Route: 065
     Dates: start: 20111215

REACTIONS (5)
  - Dry mouth [Unknown]
  - Weight decreased [Unknown]
  - Depression [Recovering/Resolving]
  - Nausea [Unknown]
  - Diarrhoea [Unknown]
